FAERS Safety Report 10028799 (Version 1)
Quarter: 2014Q1

REPORT INFORMATION
  Report Type: Spontaneous
  Country: MT (occurrence: MT)
  Receive Date: 20140321
  Receipt Date: 20140321
  Transmission Date: 20141002
  Serious: Yes (Other)
  Sender: FDA-Public Use
  Company Number: MT-BRACCO-000001

PATIENT
  Age: 77 Year
  Sex: Male

DRUGS (1)
  1. BARIUM SULFATE [Suspect]
     Indication: BARIUM SWALLOW
     Route: 048

REACTIONS (2)
  - Aspiration [Recovered/Resolved]
  - Chronic obstructive pulmonary disease [Recovered/Resolved]
